FAERS Safety Report 4449362-X (Version None)
Quarter: 2004Q3

REPORT INFORMATION
  Report Type: 
  Country: None (occurrence: None)
  Receive Date: 20040913
  Receipt Date: 20040909
  Transmission Date: 20050211
  Serious: Yes (Other)
  Sender: FDA-Public Use
  Company Number: C04-T-141

PATIENT
  Age: 46 Year
  Sex: Female
  Weight: 68.0396 kg

DRUGS (1)
  1. CARISOPRODOL [Suspect]
     Indication: MUSCLE STRAIN
     Dates: start: 20040901, end: 20040909

REACTIONS (1)
  - DRUG INEFFECTIVE [None]
